FAERS Safety Report 6189599-5 (Version None)
Quarter: 2009Q2

REPORT INFORMATION
  Report Type: 
  Country: None (occurrence: None)
  Receive Date: 20090512
  Receipt Date: 20090512
  Transmission Date: 20091009
  Serious: Yes (Other)
  Sender: FDA-Public Use
  Company Number: None

PATIENT
  Age: 28 Year
  Sex: Female
  Weight: 63.5036 kg

DRUGS (1)
  1. LEVAQUIN [Suspect]
     Dates: start: 20090410, end: 20090417

REACTIONS (5)
  - BEDRIDDEN [None]
  - DRUG TOXICITY [None]
  - HYPOAESTHESIA [None]
  - MUSCLE TWITCHING [None]
  - MYALGIA [None]
